FAERS Safety Report 6692567-8 (Version None)
Quarter: 2010Q2

REPORT INFORMATION
  Report Type: 
  Country: None (occurrence: None)
  Receive Date: 20100422
  Receipt Date: 20100413
  Transmission Date: 20101027
  Serious: Yes (Disabling)
  Sender: FDA-Public Use
  Company Number: DE-PFIZER INC-2010046369

PATIENT
  Sex: Female

DRUGS (1)
  1. DEPOCON - FERTIGSPRITZE [Suspect]
     Dosage: 1 DF, SINGLE

REACTIONS (1)
  - EPILEPSY [None]
